FAERS Safety Report 20546970 (Version 2)
Quarter: 2022Q1

REPORT INFORMATION
  Report Type: Spontaneous
  Country: FR (occurrence: FR)
  Receive Date: 20220303
  Receipt Date: 20220307
  Transmission Date: 20220424
  Serious: Yes (Hospitalization, Other)
  Sender: FDA-Public Use
  Company Number: FR-PFIZER INC-199649934PHANOV

PATIENT
  Age: 13 Year
  Sex: Female

DRUGS (1)
  1. METHOTREXATE [Suspect]
     Active Substance: METHOTREXATE
     Indication: Osteosarcoma
     Dosage: 12 G/M2, QW (14 G PER CYCLE)
     Route: 042

REACTIONS (5)
  - Erythema [Recovered/Resolved]
  - Rash erythematous [Recovered/Resolved]
  - Dermatitis bullous [Unknown]
  - Renal failure [Recovered/Resolved]
  - Stomatitis [Recovered/Resolved]
